FAERS Safety Report 4357236-8 (Version None)
Quarter: 2004Q2

REPORT INFORMATION
  Report Type: 
  Country: None (occurrence: None)
  Receive Date: 20040507
  Receipt Date: 20040421
  Transmission Date: 20050107
  Serious: Yes (Hospitalization, Other)
  Sender: FDA-Public Use
  Company Number: USA040465591

PATIENT
  Age: 84 Year
  Sex: Female

DRUGS (3)
  1. FORTEO [Suspect]
     Indication: OSTEOPOROSIS
     Dates: start: 20040301
  2. NORTRIPTYLINE HCL [Concomitant]
  3. ARICEPT [Concomitant]

REACTIONS (6)
  - ASTHENIA [None]
  - COLONIC HAEMORRHAGE [None]
  - EATING DISORDER [None]
  - MUSCLE CRAMP [None]
  - NAUSEA [None]
  - VOMITING [None]
